FAERS Safety Report 11193330 (Version 4)
Quarter: 2015Q4

REPORT INFORMATION
  Report Type: Report from Study
  Country: US (occurrence: US)
  Receive Date: 20150616
  Receipt Date: 20151228
  Transmission Date: 20160304
  Serious: Yes (Other)
  Sender: FDA-Public Use
  Company Number: US-BAYER-2015-214710

PATIENT
  Age: 56 Year
  Sex: Male

DRUGS (7)
  1. STIVARGA [Suspect]
     Active Substance: REGORAFENIB
     Indication: COLON CANCER
     Dosage: 160 MG, QD (40MG, 4 TABLETS DAILY)
     Route: 048
     Dates: start: 20150422
  2. STIVARGA [Suspect]
     Active Substance: REGORAFENIB
     Indication: COLON CANCER
     Dosage: 80 MG, QD (40MG, 2 TABLETS DAILY)
     Route: 048
     Dates: start: 2015, end: 2015
  3. XARELTO [Suspect]
     Active Substance: RIVAROXABAN
  4. STIVARGA [Suspect]
     Active Substance: REGORAFENIB
     Indication: COLON CANCER
     Dosage: 120 MG, QD (40 MG, 3 TABLETS, DAILLY)
     Route: 048
     Dates: start: 20150420
  5. STIVARGA [Suspect]
     Active Substance: REGORAFENIB
     Indication: COLON CANCER
     Dosage: 160 MG, QD
     Route: 048
     Dates: start: 2015, end: 2015
  6. STIVARGA [Suspect]
     Active Substance: REGORAFENIB
     Indication: COLON CANCER
     Dosage: UNK
     Route: 048
     Dates: start: 2015
  7. STIVARGA [Suspect]
     Active Substance: REGORAFENIB
     Indication: COLON CANCER
     Dosage: 40 MG, QD
     Route: 048
     Dates: start: 2015, end: 2015

REACTIONS (7)
  - Thrombosis [None]
  - Gastrooesophageal reflux disease [None]
  - Somnolence [None]
  - Renal disorder [None]
  - Malaise [None]
  - Fatigue [None]
  - Colon cancer [None]

NARRATIVE: CASE EVENT DATE: 20150501
